FAERS Safety Report 4732455-7 (Version None)
Quarter: 2005Q3

REPORT INFORMATION
  Report Type: 
  Country: None (occurrence: None)
  Receive Date: 20050803
  Receipt Date: 20050725
  Transmission Date: 20060218
  Serious: Yes (Hospitalization)
  Sender: FDA-Public Use
  Company Number: FR-BRISTOL-MYERS SQUIBB COMPANY-13051511

PATIENT
  Age: 92 Year
  Sex: Male

DRUGS (3)
  1. BUSPAR [Suspect]
     Route: 048
     Dates: end: 20050617
  2. SURMONTIL [Suspect]
     Dates: end: 20050617
  3. MOPRAL [Concomitant]

REACTIONS (2)
  - CONFUSIONAL STATE [None]
  - FALL [None]
